FAERS Safety Report 5478618-7 (Version None)
Quarter: 2007Q4

REPORT INFORMATION
  Report Type: 
  Country: None (occurrence: None)
  Receive Date: 20071005
  Receipt Date: 20071001
  Transmission Date: 20080405
  Serious: Yes (Other)
  Sender: FDA-Public Use
  Company Number: JP-SHR-JP-2007-036846

PATIENT
  Age: 52 Year
  Sex: Female

DRUGS (4)
  1. FLUDARA [Suspect]
     Indication: NON-HODGKIN'S LYMPHOMA
     Dosage: 60 MG, 1X/DAY
     Route: 048
     Dates: start: 20070914, end: 20070916
  2. RITUXAN [Concomitant]
     Indication: NON-HODGKIN'S LYMPHOMA
     Route: 041
     Dates: start: 20070913, end: 20070913
  3. MITOXANTRONE [Concomitant]
     Indication: NON-HODGKIN'S LYMPHOMA
     Route: 042
     Dates: start: 20070914, end: 20070916
  4. DEXAMETHASONE 0.5MG TAB [Concomitant]
     Indication: NON-HODGKIN'S LYMPHOMA
     Dates: start: 20070914, end: 20070916

REACTIONS (3)
  - BLOOD IMMUNOGLOBULIN G DECREASED [None]
  - NEUTROPHIL COUNT DECREASED [None]
  - WHITE BLOOD CELL COUNT DECREASED [None]
